FAERS Safety Report 9949826 (Version 1)
Quarter: 2014Q1

REPORT INFORMATION
  Report Type: Report from Study
  Country: US (occurrence: US)
  Receive Date: 20140304
  Receipt Date: 20140304
  Transmission Date: 20141002
  Serious: No
  Sender: FDA-Public Use
  Company Number: US-ABBVIE-13P-163-1069998-00

PATIENT
  Age: 32 Year
  Sex: Female

DRUGS (1)
  1. HUMIRA [Suspect]
     Indication: IRITIS
     Route: 058
     Dates: start: 2011, end: 201111

REACTIONS (2)
  - Intraocular pressure increased [Unknown]
  - Off label use [Unknown]
